FAERS Safety Report 7139486-0 (Version None)
Quarter: 2010Q4

REPORT INFORMATION
  Report Type: 
  Country: None (occurrence: None)
  Receive Date: 20101206
  Receipt Date: 20101130
  Transmission Date: 20110411
  Serious: Yes (Hospitalization, Other)
  Sender: FDA-Public Use
  Company Number: IT-PFIZER INC-2010150126

PATIENT
  Age: 58 Year
  Sex: Female

DRUGS (7)
  1. XANAX [Suspect]
     Indication: SUICIDE ATTEMPT
     Dosage: 15 MG, TOTAL
     Route: 048
     Dates: start: 20100910, end: 20100910
  2. XANAX [Suspect]
     Dosage: 20 ML, TOTAL
     Route: 048
     Dates: start: 20100910, end: 20100910
  3. LORMETAZEPAM [Suspect]
     Indication: SUICIDE ATTEMPT
     Dosage: 40 ML TOTAL
     Route: 048
     Dates: start: 20100910, end: 20100910
  4. NIFEDIPINE [Suspect]
     Indication: SUICIDE ATTEMPT
     Dosage: 50 UNIT DOSE TOTAL
     Route: 048
     Dates: start: 20100910, end: 20100910
  5. ACETYLSALICYLIC ACID [Concomitant]
     Dosage: 100 MG
     Route: 048
  6. ENAPREN [Concomitant]
     Dosage: 5 MG
     Route: 048
  7. MODURETIC 5-50 [Concomitant]
     Dosage: 1 UNIT
     Route: 048

REACTIONS (2)
  - MULTIPLE DRUG OVERDOSE INTENTIONAL [None]
  - SUICIDE ATTEMPT [None]
